FAERS Safety Report 9267304 (Version 4)
Quarter: 2015Q1

REPORT INFORMATION
  Report Type: Spontaneous
  Country: US (occurrence: US)
  Receive Date: 20130502
  Receipt Date: 20150217
  Transmission Date: 20150721
  Serious: Yes (Life-Threatening, Hospitalization, Other)
  Sender: FDA-Public Use
  Company Number: US-BAYER-2013-052163

PATIENT
  Age: 51 Year
  Sex: Female
  Weight: 65.31 kg

DRUGS (15)
  1. HYDROMET [HOMATROPINE METHYLBROMIDE,HYDROCODONE BITARTRATE] [Concomitant]
     Dosage: 5 ML, BID
     Route: 048
     Dates: start: 20120827
  2. FLUARIX 2011/2012 [Concomitant]
     Active Substance: INFLUENZA A VIRUS A/CALIFORNIA/7/2009 X-181 (H1N1) ANTIGEN (FORMALDEHYDE INACTIVATED)\INFLUENZA A VIRUS A/VICTORIA/210/2009 X-187 (H3N2) ANTIGEN (FORMALDEHYDE INACTIVATED)\INFLUENZA B VIRUS B/BRISBANE/60/2008 ANTIGEN (FORMALDEHYDE INACTIVATED)\INFLUENZA VIRUS VACCINE
     Dosage: UNK
     Route: 030
     Dates: start: 20121012
  3. PROBIOTICA [Concomitant]
     Active Substance: PROBIOTICS NOS
     Dosage: UNK
     Route: 048
     Dates: start: 20120827
  4. ADVAIR HFA [Concomitant]
     Active Substance: FLUTICASONE PROPIONATE\SALMETEROL XINAFOATE
     Dosage: 1 PUFF(S), BID
     Dates: start: 20120827
  5. PROVENTIL HFA [Concomitant]
     Active Substance: ALBUTEROL SULFATE
     Indication: COUGH
     Dosage: 1 PUFF(S), Q4HR
     Dates: start: 20120827
  6. PNEUMOVAX 23 [Concomitant]
     Active Substance: PNEUMOCOCCAL VACCINE, POLYVALENT 23
     Dosage: UNK
     Route: 030
     Dates: start: 20121012
  7. DUONEB [Concomitant]
     Active Substance: ALBUTEROL SULFATE\IPRATROPIUM BROMIDE
     Dosage: 0.5-2.5 (3) MG/3ML SOLN
     Dates: start: 20120827
  8. YAZ [Suspect]
     Active Substance: DROSPIRENONE\ETHINYL ESTRADIOL
     Indication: CONTRACEPTION
     Dosage: UNK
     Dates: start: 20070831, end: 20121016
  9. PROVENTIL HFA [Concomitant]
     Active Substance: ALBUTEROL SULFATE
     Indication: WHEEZING
  10. ADVIL [Concomitant]
     Active Substance: IBUPROFEN
     Dosage: RARELY
     Dates: start: 2003
  11. MULTIVITAMINS [Concomitant]
     Active Substance: VITAMINS
     Dosage: UNK UNK, QD
  12. TESSALON [Concomitant]
     Active Substance: BENZONATATE
     Indication: COUGH
     Dosage: 200 MG -1 BID, PRN
     Route: 048
     Dates: start: 20120821
  13. FLAXSEED [Concomitant]
     Active Substance: FLAX SEED
  14. ATENOLOL. [Concomitant]
     Active Substance: ATENOLOL
     Dosage: 25 MG, UNK
     Dates: start: 20121214
  15. ACIDOPHILUS [Concomitant]
     Active Substance: LACTOBACILLUS ACIDOPHILUS
     Dosage: 1 CHEWABLE TAB PER DAY

REACTIONS (4)
  - Injury [Recovered/Resolved]
  - Cholelithiasis [None]
  - Pulmonary embolism [Recovered/Resolved]
  - Anxiety [None]

NARRATIVE: CASE EVENT DATE: 20121012
